FAERS Safety Report 22133602 (Version 1)
Quarter: 2023Q1

REPORT INFORMATION
  Report Type: Spontaneous
  Country: NL (occurrence: NL)
  Receive Date: 20230324
  Receipt Date: 20230324
  Transmission Date: 20230418
  Serious: Yes (Other)
  Sender: FDA-Public Use
  Company Number: None

PATIENT
  Sex: Female
  Weight: 57 kg

DRUGS (1)
  1. DIPROSONE [Suspect]
     Active Substance: BETAMETHASONE DIPROPIONATE
     Indication: Eczema
     Dosage: 2 X PER DAY
     Dates: start: 20051005

REACTIONS (1)
  - Topical steroid withdrawal reaction [Recovering/Resolving]
